FAERS Safety Report 4485097-5 (Version None)
Quarter: 2004Q4

REPORT INFORMATION
  Report Type: 
  Country: None (occurrence: None)
  Receive Date: 20041026
  Receipt Date: 20031006
  Transmission Date: 20050328
  Serious: No
  Sender: FDA-Public Use
  Company Number: US-BRISTOL-MYERS SQUIBB COMPANY-12403549

PATIENT
  Age: 31 Year
  Sex: Female
  Weight: 113 kg

DRUGS (9)
  1. GLUCOPHAGE XR [Suspect]
     Indication: DIABETES MELLITUS
     Route: 048
  2. LANTUS [Concomitant]
  3. REGULAR ILETIN II [Concomitant]
  4. LEXAPRO [Concomitant]
  5. REMERON [Concomitant]
  6. TEMAZEPAM [Concomitant]
  7. DEPAKOTE [Concomitant]
  8. LITHIUM [Concomitant]
  9. LEVOXYL [Concomitant]

REACTIONS (1)
  - DIARRHOEA [None]
